FAERS Safety Report 7468143-6 (Version None)
Quarter: 2011Q2

REPORT INFORMATION
  Report Type: 
  Country: None (occurrence: None)
  Receive Date: 20110509
  Receipt Date: 20110426
  Transmission Date: 20111010
  Serious: Yes (Other)
  Sender: FDA-Public Use
  Company Number: PT-BAYER-2011-036979

PATIENT
  Age: 52 Year
  Sex: Male

DRUGS (1)
  1. NAPROXEN SODIUM [Suspect]
     Dosage: 500 MG, QD
     Route: 048
     Dates: start: 20100901

REACTIONS (2)
  - URTICARIA [None]
  - LIP OEDEMA [None]
